FAERS Safety Report 11030902 (Version 1)
Quarter: 2015Q2

REPORT INFORMATION
  Report Type: Spontaneous
  Country: BE (occurrence: BE)
  Receive Date: 20150415
  Receipt Date: 20150415
  Transmission Date: 20150821
  Serious: Yes (Death, Hospitalization)
  Sender: FDA-Public Use
  Company Number: BE-BAYER-2015-116477

PATIENT
  Age: 71 Year
  Sex: Female

DRUGS (15)
  1. SIMVASTATIN. [Concomitant]
     Active Substance: SIMVASTATIN
  2. METHYLPREDNISOLONE. [Suspect]
     Active Substance: METHYLPREDNISOLONE
  3. DARBEPOETIN ALFA [Suspect]
     Active Substance: DARBEPOETIN ALFA
  4. MOLSIDOMINE [Concomitant]
     Active Substance: MOLSIDOMINE
  5. DIGOXIN. [Concomitant]
     Active Substance: DIGOXIN
     Indication: ATRIAL FIBRILLATION
  6. LEVOTHYROXINE [Concomitant]
     Active Substance: LEVOTHYROXINE
  7. CALCIUM CARBONATE. [Suspect]
     Active Substance: CALCIUM CARBONATE
  8. ALLOPURINOL. [Concomitant]
     Active Substance: ALLOPURINOL
  9. BUMETANIDE. [Concomitant]
     Active Substance: BUMETANIDE
  10. LISINOPRIL. [Concomitant]
     Active Substance: LISINOPRIL
  11. PAMIDRONATE [Concomitant]
     Active Substance: PAMIDRONATE DISODIUM
  12. COUMADIN [Suspect]
     Active Substance: WARFARIN SODIUM
     Indication: ATRIAL FIBRILLATION
  13. OMEPRAZOLE. [Concomitant]
     Active Substance: OMEPRAZOLE
  14. MYCOPHENOLATE MOFETIL. [Concomitant]
     Active Substance: MYCOPHENOLATE MOFETIL
  15. CINACALCET [Concomitant]
     Active Substance: CINACALCET

REACTIONS (6)
  - Calciphylaxis [None]
  - Hyperaesthesia [None]
  - Sepsis [Fatal]
  - Ecchymosis [None]
  - Skin ulcer [None]
  - Infected skin ulcer [None]
